FAERS Safety Report 20311300 (Version 1)
Quarter: 2022Q1

REPORT INFORMATION
  Report Type: Spontaneous
  Country: US (occurrence: US)
  Receive Date: 20220107
  Receipt Date: 20220107
  Transmission Date: 20220424
  Serious: Yes (Other)
  Sender: FDA-Public Use
  Company Number: US-TEVA-2021-US-1995734

PATIENT
  Age: 57 Year
  Sex: Female

DRUGS (1)
  1. CLONAZEPAM [Suspect]
     Active Substance: CLONAZEPAM
     Indication: Panic disorder
     Route: 065

REACTIONS (7)
  - Product contamination microbial [Unknown]
  - Feeling abnormal [Recovered/Resolved]
  - Agnosia [Recovered/Resolved]
  - Middle insomnia [Recovered/Resolved]
  - Inappropriate schedule of product administration [Unknown]
  - Product residue present [Unknown]
  - Anger [Recovered/Resolved]

NARRATIVE: CASE EVENT DATE: 20211124
